FAERS Safety Report 5228733-8 (Version None)
Quarter: 2007Q1

REPORT INFORMATION
  Report Type: 
  Country: None (occurrence: None)
  Receive Date: 20070131
  Receipt Date: 20070131
  Transmission Date: 20070707
  Serious: Yes (Life-Threatening)
  Sender: FDA-Public Use
  Company Number: 2007BL000125

PATIENT
  Age: 1 Day
  Sex: Male

DRUGS (4)
  1. PREDNISOLONE SODIUM PHOSPHATE [Suspect]
     Indication: DRUG USE FOR UNKNOWN INDICATION
  2. BECLOMETHASONE DIPROPIONATE [Concomitant]
  3. IPRATROPIUM BROMIDE [Concomitant]
  4. SALBUTAMOL [Concomitant]

REACTIONS (1)
  - MELAENA [None]
